FAERS Safety Report 8361128-7 (Version None)
Quarter: 2012Q1

REPORT INFORMATION
  Report Type: 
  Country: None (occurrence: None)
  Receive Date: 20120323
  Receipt Date: 20110627
  Transmission Date: 20120608
  Serious: Yes (Other)
  Sender: FDA-Public Use
  Company Number: 163-21880-11040674

PATIENT
  Age: 79 Year
  Sex: Male
  Weight: 63.1 kg

DRUGS (2)
  1. REVLIMID [Suspect]
     Indication: MULTIPLE MYELOMA
     Dosage: 15 MG, DAILY FOR 21 DAYS, THEN REST FOR 7 DAYS, PO
     Dates: start: 20110117
  2. REVLIMID [Suspect]

REACTIONS (7)
  - DECREASED APPETITE [None]
  - BACK PAIN [None]
  - WEIGHT DECREASED [None]
  - MUSCLE SPASMS [None]
  - ANAEMIA [None]
  - BONE LOSS [None]
  - DEPRESSION [None]
